FAERS Safety Report 6033856-X (Version None)
Quarter: 2009Q1

REPORT INFORMATION
  Report Type: 
  Country: None (occurrence: None)
  Receive Date: 20090108
  Receipt Date: 20090108
  Transmission Date: 20090719
  Serious: Yes (Hospitalization, Other)
  Sender: FDA-Public Use
  Company Number: None

PATIENT
  Sex: Male
  Weight: 81 kg

DRUGS (1)
  1. THERACYS [Suspect]
     Indication: BLADDER CANCER
     Dosage: 81/MG/53ML WEEKLY 043 WEEKLY X 6
     Dates: start: 20080916

REACTIONS (2)
  - BODY TEMPERATURE INCREASED [None]
  - CHILLS [None]
